FAERS Safety Report 14484049 (Version 2)
Quarter: 2018Q2

REPORT INFORMATION
  Report Type: Spontaneous
  Country: US (occurrence: US)
  Receive Date: 20180205
  Receipt Date: 20180601
  Transmission Date: 20180711
  Serious: No
  Sender: FDA-Public Use
  Company Number: US-ASTRAZENECA-2018SE13672

PATIENT
  Age: 78 Year
  Sex: Male
  Weight: 90.7 kg

DRUGS (1)
  1. SYMBICORT [Suspect]
     Active Substance: BUDESONIDE\FORMOTEROL FUMARATE DIHYDRATE
     Indication: CHRONIC OBSTRUCTIVE PULMONARY DISEASE
     Dosage: 160/4.5 UG, TWO TIMES A DAY
     Route: 055
     Dates: start: 2016

REACTIONS (6)
  - Dyspnoea [Unknown]
  - Off label use [Unknown]
  - Product use complaint [Unknown]
  - Intentional product misuse [Unknown]
  - Device malfunction [Unknown]
  - Circumstance or information capable of leading to medication error [Unknown]

NARRATIVE: CASE EVENT DATE: 2016
